FAERS Safety Report 7032786-4 (Version None)
Quarter: 2010Q4

REPORT INFORMATION
  Report Type: 
  Country: None (occurrence: None)
  Receive Date: 20101005
  Receipt Date: 20100902
  Transmission Date: 20110411
  Serious: Yes (Hospitalization)
  Sender: FDA-Public Use
  Company Number: GB-ACCORD-004655

PATIENT
  Age: 54 Year
  Sex: Male

DRUGS (6)
  1. MYCOPHENOLATE MOFETIL [Suspect]
     Indication: RENAL TRANSPLANT
  2. RITUXIMAB (RITUXIMAB) [Suspect]
     Indication: RENAL TRANSPLANT
  3. IMMUNE GLOBULIN (HUMAN) [Suspect]
     Indication: RENAL TRANSPLANT
     Dosage: INTRAVENOUS
     Route: 042
  4. BASILIXIMAB (BASILIXIMAB) [Suspect]
     Indication: RENAL TRANSPLANT
  5. TACROLIMUS [Suspect]
     Indication: RENAL TRANSPLANT
  6. PREDNISOLONE [Suspect]
     Indication: RENAL TRANSPLANT

REACTIONS (7)
  - BLOOD CREATININE INCREASED [None]
  - DIARRHOEA [None]
  - DRUG LEVEL DECREASED [None]
  - GLOMERULONEPHRITIS [None]
  - HAEMATURIA [None]
  - PERITONITIS [None]
  - TRANSPLANT REJECTION [None]
